FAERS Safety Report 5657208-7 (Version None)
Quarter: 2008Q1

REPORT INFORMATION
  Report Type: 
  Country: None (occurrence: None)
  Receive Date: 20080219
  Receipt Date: 20071121
  Transmission Date: 20080703
  Serious: No
  Sender: FDA-Public Use
  Company Number: WAES 0711USA04501

PATIENT
  Sex: Male

DRUGS (2)
  1. JANUVIA [Suspect]
     Dosage: 100 MG/DAILY/PO ; BID/PO
     Route: 048
  2. JANUVIA [Suspect]
     Dosage: 100 MG/DAILY/PO ; BID/PO
     Route: 048
     Dates: start: 20071116

REACTIONS (2)
  - DRUG INEFFECTIVE [None]
  - OVERDOSE [None]
